FAERS Safety Report 6533036-5 (Version None)
Quarter: 2010Q1

REPORT INFORMATION
  Report Type: 
  Country: None (occurrence: None)
  Receive Date: 20100111
  Receipt Date: 20100104
  Transmission Date: 20100710
  Serious: Yes (Other)
  Sender: FDA-Public Use
  Company Number: FR-PFIZER INC-2010002079

PATIENT
  Sex: Male

DRUGS (1)
  1. TAHOR [Suspect]

REACTIONS (9)
  - AFFECTIVE DISORDER [None]
  - ARTHRALGIA [None]
  - DIABETES MELLITUS [None]
  - HEADACHE [None]
  - PRURITUS [None]
  - SUICIDAL IDEATION [None]
  - TINNITUS [None]
  - VERTIGO [None]
  - VISUAL IMPAIRMENT [None]
